FAERS Safety Report 14112156 (Version 1)
Quarter: 2017Q4

REPORT INFORMATION
  Report Type: Spontaneous
  Country: FR (occurrence: FR)
  Receive Date: 20171020
  Receipt Date: 20171020
  Transmission Date: 20180321
  Serious: Yes (Hospitalization)
  Sender: FDA-Public Use
  Company Number: FR-BRACCO-2017FR04644

PATIENT
  Age: 53 Year
  Sex: Female

DRUGS (2)
  1. HYDROCORTANCYL [Suspect]
     Active Substance: PREDNISONE
     Indication: NECK PAIN
     Dosage: UNK
     Route: 014
     Dates: start: 201604, end: 201604
  2. IOPAMIRON [Suspect]
     Active Substance: IOPAMIDOL
     Indication: ARTHROGRAM
     Dosage: UNK UNK, SINGLE
     Route: 014
     Dates: start: 201604, end: 201604

REACTIONS (7)
  - Anaphylactoid reaction [Recovered/Resolved]
  - Presyncope [Recovered/Resolved]
  - Asthmatic crisis [Recovered/Resolved]
  - Loss of consciousness [Recovered/Resolved]
  - Nausea [Recovered/Resolved]
  - Hot flush [Recovered/Resolved]
  - Malaise [Recovered/Resolved]

NARRATIVE: CASE EVENT DATE: 201604
